FAERS Safety Report 8065669-1 (Version None)
Quarter: 2012Q1

REPORT INFORMATION
  Report Type: 
  Country: None (occurrence: None)
  Receive Date: 20120124
  Receipt Date: 20120116
  Transmission Date: 20120608
  Serious: Yes (Hospitalization)
  Sender: FDA-Public Use
  Company Number: US-BAYER-2011-074935

PATIENT
  Age: 22 Year
  Sex: Female
  Weight: 76.19 kg

DRUGS (1)
  1. YAZ [Suspect]
     Dosage: UNK
     Route: 048
     Dates: start: 20100801, end: 20101004

REACTIONS (5)
  - PAIN [None]
  - INJURY [None]
  - PULMONARY EMBOLISM [None]
  - MENTAL DISORDER [None]
  - DYSPNOEA [None]
